FAERS Safety Report 23995745 (Version 1)
Quarter: 2024Q2

REPORT INFORMATION
  Report Type: Spontaneous
  Country: FR (occurrence: FR)
  Receive Date: 20240620
  Receipt Date: 20240620
  Transmission Date: 20240716
  Serious: Yes (Death)
  Sender: FDA-Public Use
  Company Number: None

PATIENT
  Age: 72 Year
  Sex: Male
  Weight: 86 kg

DRUGS (2)
  1. OXYCODONE HYDROCHLORIDE [Suspect]
     Active Substance: OXYCODONE HYDROCHLORIDE
     Indication: Pain
     Dosage: 1MG/ML (DRUG NOT ADMINISTERED)
     Route: 065
     Dates: start: 20240601, end: 20240601
  2. OXYCODONE HYDROCHLORIDE [Suspect]
     Active Substance: OXYCODONE HYDROCHLORIDE
     Dosage: 4MG/ML
     Route: 065
     Dates: start: 20240601, end: 20240601

REACTIONS (2)
  - Coma [Fatal]
  - Accidental overdose [Fatal]

NARRATIVE: CASE EVENT DATE: 20240601
